FAERS Safety Report 13301117 (Version 3)
Quarter: 2017Q2

REPORT INFORMATION
  Report Type: Spontaneous
  Country: LT (occurrence: LT)
  Receive Date: 20170307
  Receipt Date: 20170424
  Transmission Date: 20170830
  Serious: Yes (Hospitalization, Other)
  Sender: FDA-Public Use
  Company Number: PHHY2017LT033193

PATIENT
  Age: 38 Year
  Sex: Female

DRUGS (1)
  1. TAFINLAR [Suspect]
     Active Substance: DABRAFENIB MESYLATE
     Indication: METASTATIC MALIGNANT MELANOMA
     Dosage: 300 MG, BID
     Route: 048
     Dates: start: 20170125, end: 20170224

REACTIONS (7)
  - Chest pain [Unknown]
  - Microembolism [Recovering/Resolving]
  - Metastatic malignant melanoma [Unknown]
  - Tachycardia [Unknown]
  - Malignant neoplasm progression [Unknown]
  - Haemoptysis [Recovered/Resolved]
  - Dyspnoea [Unknown]

NARRATIVE: CASE EVENT DATE: 20170224
